FAERS Safety Report 5239863-9 (Version None)
Quarter: 2007Q1

REPORT INFORMATION
  Report Type: 
  Country: None (occurrence: None)
  Receive Date: 20070212
  Receipt Date: 20070125
  Transmission Date: 20070707
  Serious: Yes (Death, Hospitalization)
  Sender: FDA-Public Use
  Company Number: 2007RR-05538

PATIENT
  Age: 28 Year
  Sex: Male

DRUGS (5)
  1. CARBAMAZEPINE [Suspect]
     Indication: DRUG USE FOR UNKNOWN INDICATION
     Dosage: 40 G, ORAL
     Route: 048
  2. OLANZAPINE [Suspect]
     Indication: DRUG USE FOR UNKNOWN INDICATION
     Dosage: 0.56 G
  3. CLOTIAPIN(CLOTIAPIN) [Suspect]
     Indication: DRUG USE FOR UNKNOWN INDICATION
     Dosage: 0.8 G
  4. LORAZEPAM(LORAZEPAM) UNKNOWN [Suspect]
     Indication: DRUG USE FOR UNKNOWN INDICATION
     Dosage: 25 MG
  5. TOPIRAMATE [Suspect]
     Indication: DRUG USE FOR UNKNOWN INDICATION

REACTIONS (15)
  - BRADYCARDIA [None]
  - BRAIN HERNIATION [None]
  - BRAIN OEDEMA [None]
  - CARDIAC ARREST [None]
  - COMA [None]
  - CONVULSION [None]
  - COORDINATION ABNORMAL [None]
  - HYPOTENSION [None]
  - HYPOTONIA [None]
  - LETHARGY [None]
  - OVERDOSE [None]
  - POISONING [None]
  - PULMONARY OEDEMA [None]
  - RESPIRATORY DISTRESS [None]
  - SYNCOPE [None]
